FAERS Safety Report 9728479 (Version 1)
Quarter: 2013Q4

REPORT INFORMATION
  Report Type: Spontaneous
  Country: US (occurrence: None)
  Receive Date: 20131203
  Receipt Date: 20131203
  Transmission Date: 20140711
  Serious: Yes (Hospitalization)
  Sender: FDA-Public Use
  Company Number: None

PATIENT
  Age: 59 Year
  Sex: Female
  Weight: 111.59 kg

DRUGS (19)
  1. MORPHINE SULFATE [Suspect]
     Indication: BACK PAIN
     Route: 042
     Dates: start: 20131126, end: 20131126
  2. MORPHINE SULFATE [Suspect]
     Indication: ABDOMINAL PAIN
     Route: 042
     Dates: start: 20131126, end: 20131126
  3. MORPHINE SULFATE [Suspect]
     Indication: NEPHROLITHIASIS
     Route: 042
     Dates: start: 20131126, end: 20131126
  4. ONDANSETRON [Suspect]
     Indication: BACK PAIN
     Route: 042
     Dates: start: 20131126, end: 20131126
  5. ONDANSETRON [Suspect]
     Indication: ABDOMINAL PAIN
     Route: 042
     Dates: start: 20131126, end: 20131126
  6. ONDANSETRON [Suspect]
     Indication: NEPHROLITHIASIS
     Route: 042
     Dates: start: 20131126, end: 20131126
  7. NORMAL SALINE [Concomitant]
  8. LISINOPRIL [Concomitant]
  9. METOPROLOL [Concomitant]
  10. MOBIC [Concomitant]
  11. IRON [Concomitant]
  12. ALLERGRA [Concomitant]
  13. BIOTIN [Concomitant]
  14. CALCIUM/VITAMIN D [Concomitant]
  15. MVI PEDIATRIC [Concomitant]
  16. NIACIN [Concomitant]
  17. VITAMIN B-12 [Concomitant]
  18. VITAMIN D-3 [Concomitant]
  19. PATANOL GTTS [Concomitant]

REACTIONS (1)
  - Chest pain [None]
